FAERS Safety Report 10094499 (Version 3)
Quarter: 2014Q4

REPORT INFORMATION
  Report Type: Spontaneous
  Country: US (occurrence: US)
  Receive Date: 20140422
  Receipt Date: 20141104
  Transmission Date: 20150528
  Serious: Yes (Other)
  Sender: FDA-Public Use
  Company Number: US-BEH-2012031877

PATIENT
  Age: 40 Year
  Sex: Female
  Weight: 57 kg

DRUGS (2)
  1. HIZENTRA [Suspect]
     Active Substance: HUMAN IMMUNOGLOBULIN G
  2. HIZENTRA [Suspect]
     Active Substance: HUMAN IMMUNOGLOBULIN G
     Indication: IMMUNODEFICIENCY
     Dates: start: 20120402

REACTIONS (4)
  - Kidney infection [Recovered/Resolved]
  - Sinusitis [Recovered/Resolved]
  - Injection site erythema [Unknown]
  - Injection site nodule [Unknown]

NARRATIVE: CASE EVENT DATE: 20120402
